FAERS Safety Report 6180723-7 (Version None)
Quarter: 2009Q2

REPORT INFORMATION
  Report Type: 
  Country: None (occurrence: None)
  Receive Date: 20090506
  Receipt Date: 20090421
  Transmission Date: 20091009
  Serious: Yes (Other)
  Sender: FDA-Public Use
  Company Number: US-ROCHE-629116

PATIENT
  Sex: Female
  Weight: 64 kg

DRUGS (2)
  1. PEG-INTERFERON ALFA 2A (RO 25-8310) [Suspect]
     Indication: HEPATITIS C
     Dosage: FREQUENCY REPORTED AS SQ WEEKLY; DOSE FORM: INJECTION
     Route: 058
     Dates: start: 20090319, end: 20090323
  2. RIBAVIRIN [Suspect]
     Indication: HEPATITIS C
     Dosage: DOSAGE FORM: PILL; DOSE 200 MG; FREQUENCY: 3 POQAM, 2POQPM
     Route: 048
     Dates: start: 20090319, end: 20090323

REACTIONS (4)
  - ASTHENIA [None]
  - HEADACHE [None]
  - LETHARGY [None]
  - SYNCOPE [None]
